FAERS Safety Report 8238763 (Version 4)
Quarter: 2013Q3

REPORT INFORMATION
  Report Type: Report from Study
  Country: NO (occurrence: NO)
  Receive Date: 20111110
  Receipt Date: 20130725
  Transmission Date: 20140515
  Serious: Yes (Hospitalization)
  Sender: FDA-Public Use
  Company Number: NO-ASTRAZENECA-2011SE65894

PATIENT
  Age: 26809 Day
  Sex: Female

DRUGS (9)
  1. AZD6140 [Suspect]
     Indication: CORONARY ARTERY DISEASE
     Route: 048
     Dates: start: 20111020, end: 20111024
  2. AZD6140 [Suspect]
     Indication: CORONARY ARTERY DISEASE
     Route: 048
     Dates: start: 20111027, end: 20111028
  3. ALBYL E [Suspect]
     Route: 048
  4. PREDNISOLON [Suspect]
     Indication: RHEUMATOID ARTHRITIS
     Route: 048
  5. SOMAC [Concomitant]
     Indication: GASTRIC HAEMORRHAGE
     Route: 048
  6. SOMAC [Concomitant]
     Indication: GASTRIC HAEMORRHAGE
     Route: 048
  7. LIPITOR [Concomitant]
     Indication: MYOCARDIAL INFARCTION
     Route: 048
  8. LISINOPRIL [Concomitant]
     Indication: MYOCARDIAL INFARCTION
     Route: 048
  9. METOPROLOL [Concomitant]
     Indication: MYOCARDIAL INFARCTION
     Route: 048

REACTIONS (2)
  - Gastric ulcer [Recovered/Resolved]
  - Haematochezia [None]
